FAERS Safety Report 6515992-4 (Version None)
Quarter: 2009Q4

REPORT INFORMATION
  Report Type: 
  Country: None (occurrence: None)
  Receive Date: 20091211
  Receipt Date: 20090903
  Transmission Date: 20100525
  Serious: Yes (Hospitalization)
  Sender: FDA-Public Use
  Company Number: SPV1-2009-01787

PATIENT
  Age: 31 Year
  Sex: Female
  Weight: 90.7 kg

DRUGS (23)
  1. ADDERALL XR 10 [Suspect]
     Indication: ENERGY INCREASED
     Dosage: 60 MG, 1X/DAY: QD (TWO CAPSULES DAILY), ORAL
     Route: 048
  2. ADVAIR DISKUS 100/50 [Concomitant]
  3. CADUET [Concomitant]
  4. BENICAR [Concomitant]
  5. GABAPENTIN [Concomitant]
  6. LEVOXYL [Concomitant]
  7. OMEPRAZOL   /00661201/ (OMEPRAZOLE) [Concomitant]
  8. EFFEXOR    /01233801/ (VENLAFAXINE) [Concomitant]
  9. ERGOCALCIFEROL [Concomitant]
  10. SERTRALINE HYDROCHLORIDE [Concomitant]
  11. ESTRADIOL [Concomitant]
  12. HYDROCHLOROTH (HYDROCHLOROTHIAZIDE) [Concomitant]
  13. TEMAZEPAM [Concomitant]
  14. MIRTAZAPINE [Concomitant]
  15. ZOLPIDEM [Concomitant]
  16. PHENERGAN    /00033001/ (PROMETHAZINE) [Concomitant]
  17. ALPRAZOLAM [Concomitant]
  18. LORAZEPAM [Concomitant]
  19. OXYCONTIN [Concomitant]
  20. PERCOCET [Concomitant]
  21. NASONEX [Concomitant]
  22. MIRALAX [Concomitant]
  23. ASPIRIN [Concomitant]

REACTIONS (9)
  - CEREBROVASCULAR ACCIDENT [None]
  - CONFUSIONAL STATE [None]
  - DRUG INEFFECTIVE FOR UNAPPROVED INDICATION [None]
  - INAPPROPRIATE SCHEDULE OF DRUG ADMINISTRATION [None]
  - OFF LABEL USE [None]
  - OVERDOSE [None]
  - SLEEP APNOEA SYNDROME [None]
  - SOMNOLENCE [None]
  - THINKING ABNORMAL [None]
